FAERS Safety Report 25654902 (Version 1)
Quarter: 2025Q3

REPORT INFORMATION
  Report Type: Spontaneous
  Country: US (occurrence: None)
  Receive Date: 20250807
  Receipt Date: 20250807
  Transmission Date: 20251020
  Serious: Yes (Hospitalization)
  Sender: FDA-CTU
  Company Number: None

PATIENT
  Sex: Female

DRUGS (11)
  1. LENALIDOMIDE [Suspect]
     Active Substance: LENALIDOMIDE
     Indication: Plasma cell myeloma
     Dosage: FREQUENCY : DAILY;?
     Route: 048
     Dates: start: 20240524
  2. ASPIRIN [Concomitant]
     Active Substance: ASPIRIN
  3. CALCIUM TAB 500/D [Concomitant]
  4. CENTRUM TAB SILVER [Concomitant]
  5. D2000 ULTRA STRENGTH [Concomitant]
  6. DEXAMETHASONE [Concomitant]
     Active Substance: DEXAMETHASONE
  7. EXCEDRIN TAB MIGRAINE [Concomitant]
  8. FAMOTIDINE TAB [Concomitant]
  9. LENALIDOMIDE [Concomitant]
     Active Substance: LENALIDOMIDE
  10. LENALIDOMIDE [Concomitant]
     Active Substance: LENALIDOMIDE
  11. MIRALAX POW 3350 NF [Concomitant]

REACTIONS (1)
  - Intestinal obstruction [None]
